FAERS Safety Report 10609968 (Version 1)
Quarter: 2014Q4

REPORT INFORMATION
  Report Type: Spontaneous
  Country: BR (occurrence: BR)
  Receive Date: 20141126
  Receipt Date: 20141126
  Transmission Date: 20150529
  Serious: Yes (Other)
  Sender: FDA-Public Use
  Company Number: BR-PFIZER INC-2014323056

PATIENT
  Age: 25 Year
  Sex: Female
  Weight: 99 kg

DRUGS (7)
  1. AVAMYS [Concomitant]
     Active Substance: FLUTICASONE FUROATE
     Dosage: 2 PUFFS IN EACH NOSTRIL AT NIGHT
     Route: 055
  2. URSACOL [Concomitant]
     Active Substance: URSODIOL
     Indication: CHOLELITHIASIS
     Dosage: 150 MG, 2X/DAY
     Route: 048
  3. FRISIUM [Concomitant]
     Active Substance: CLOBAZAM
     Dosage: 10 MG, AS NEEDED (IN CASE OF CRISIS)
     Route: 048
  4. LACTULONA [Concomitant]
     Indication: CONSTIPATION
     Dosage: UNK, AS NEEDED
     Route: 048
  5. GARDENAL [Concomitant]
     Active Substance: PHENOBARBITAL
     Dosage: 150 MG, 50MG IN THE MORNING AND 100MG AT THE NITGHT.
     Route: 048
  6. FELDENE [Suspect]
     Active Substance: PIROXICAM
     Indication: MENSTRUAL CYCLE MANAGEMENT
     Dosage: UNK, 2X/DAY (EVERY 12 HOURS)
  7. FRISIUM [Concomitant]
     Active Substance: CLOBAZAM
     Dosage: 10 MG, DAILY
     Route: 048

REACTIONS (2)
  - Off label use [Unknown]
  - Oxygen saturation decreased [Recovering/Resolving]

NARRATIVE: CASE EVENT DATE: 201408
